FAERS Safety Report 19717496 (Version 4)
Quarter: 2021Q3

REPORT INFORMATION
  Report Type: Report from Study
  Country: None (occurrence: NL)
  Receive Date: 20210819
  Receipt Date: 20210920
  Transmission Date: 20211014
  Serious: Yes (Other)
  Sender: FDA-Public Use
  Company Number: NL-ABBVIE-21K-114-4044572-00

PATIENT
  Age: 65 Year
  Sex: Female

DRUGS (3)
  1. DUODOPA [Suspect]
     Active Substance: CARBIDOPA\LEVODOPA
     Dosage: MD 11.0 ML; CD 3.4 ML/H; ED 2.0 ML
     Route: 050
     Dates: start: 2021, end: 2021
  2. DUODOPA [Suspect]
     Active Substance: CARBIDOPA\LEVODOPA
     Dosage: MD 11.0 ML CD 3.4 ML/H ED 3.0 ML
     Route: 050
     Dates: start: 2021
  3. DUODOPA [Suspect]
     Active Substance: CARBIDOPA\LEVODOPA
     Indication: PARKINSON^S DISEASE
     Dosage: MD 8.0 ML; CD 3.1 ML/H; ED 1.0 ML
     Route: 050
     Dates: start: 20210726, end: 2021

REACTIONS (13)
  - Suicidal ideation [Recovered/Resolved]
  - On and off phenomenon [Not Recovered/Not Resolved]
  - Loss of personal independence in daily activities [Not Recovered/Not Resolved]
  - Dyskinesia [Not Recovered/Not Resolved]
  - Tremor [Not Recovered/Not Resolved]
  - Enteral nutrition [Unknown]
  - Dysphagia [Not Recovered/Not Resolved]
  - Extra dose administered [Not Recovered/Not Resolved]
  - Hyperkinesia [Not Recovered/Not Resolved]
  - Weight increased [Not Recovered/Not Resolved]
  - Intentional product misuse [Not Recovered/Not Resolved]
  - Hallucination, auditory [Recovered/Resolved]
  - Underweight [Recovering/Resolving]

NARRATIVE: CASE EVENT DATE: 2021
